FAERS Safety Report 14653670 (Version 5)
Quarter: 2018Q2

REPORT INFORMATION
  Report Type: Spontaneous
  Country: US (occurrence: US)
  Receive Date: 20180319
  Receipt Date: 20180621
  Transmission Date: 20180711
  Serious: No
  Sender: FDA-Public Use
  Company Number: US-PFIZER INC-2018100729

PATIENT
  Age: 48 Year
  Sex: Female
  Weight: 96.15 kg

DRUGS (4)
  1. LYRICA [Suspect]
     Active Substance: PREGABALIN
     Indication: MEDICAL COUNSELLING
     Dosage: 100 MG, 3X/DAY
     Route: 048
     Dates: start: 20180208
  2. TOPIRAMATE. [Concomitant]
     Active Substance: TOPIRAMATE
     Indication: DEPRESSION
     Dosage: 300 MG, DAILY (100MG IN THE MORNING AND TWO 100MG TABLETS IN THE EVENING)
  3. LYRICA [Suspect]
     Active Substance: PREGABALIN
     Indication: POLYNEUROPATHY
     Dosage: 150 MG, UNK
     Route: 048
  4. LYRICA [Suspect]
     Active Substance: PREGABALIN
     Indication: NERVE INJURY
     Dosage: 75 MG, UNK

REACTIONS (4)
  - Crying [Unknown]
  - Pain [Recovering/Resolving]
  - Condition aggravated [Recovering/Resolving]
  - Insomnia [Unknown]
